FAERS Safety Report 24246711 (Version 2)
Quarter: 2024Q3

REPORT INFORMATION
  Report Type: Spontaneous
  Country: CA (occurrence: CA)
  Receive Date: 20240825
  Receipt Date: 20240913
  Transmission Date: 20241016
  Serious: Yes (Other)
  Sender: PFIZER
  Company Number: CA-SEATTLE GENETICS-2023SGN12271

PATIENT
  Age: 43 Year
  Sex: Female

DRUGS (1)
  1. TUKYSA [Suspect]
     Active Substance: TUCATINIB
     Indication: HER2 positive breast cancer
     Dosage: 150MG/2/DAY
     Route: 048
     Dates: start: 20211201

REACTIONS (3)
  - Pneumonia [Unknown]
  - Neoplasm progression [Not Recovered/Not Resolved]
  - Fatigue [Unknown]
